FAERS Safety Report 24999023 (Version 1)
Quarter: 2025Q1

REPORT INFORMATION
  Report Type: Spontaneous
  Country: US (occurrence: US)
  Receive Date: 20250222
  Receipt Date: 20250222
  Transmission Date: 20250408
  Serious: No
  Sender: SANOFI AVENTIS
  Company Number: US-SA-2025SA048219

PATIENT
  Age: 60 Year
  Sex: Male

DRUGS (1)
  1. ALGLUCOSIDASE ALFA [Suspect]
     Active Substance: ALGLUCOSIDASE ALFA

REACTIONS (1)
  - Drug specific antibody present [Unknown]

NARRATIVE: CASE EVENT DATE: 20250121
